FAERS Safety Report 8096110-0 (Version None)
Quarter: 2012Q1

REPORT INFORMATION
  Report Type: 
  Country: None (occurrence: None)
  Receive Date: 20120131
  Receipt Date: 20120130
  Transmission Date: 20120608
  Serious: Yes (Hospitalization)
  Sender: FDA-Public Use
  Company Number: US-GLAXOSMITHKLINE-A0913481A

PATIENT
  Age: 62 Year
  Sex: Male
  Weight: 111.4 kg

DRUGS (10)
  1. ZESTORETIC [Concomitant]
  2. ASPIRIN [Concomitant]
  3. AMARYL [Concomitant]
     Dates: end: 20011121
  4. LIPITOR [Concomitant]
  5. ACTOS [Concomitant]
     Dates: start: 20011121
  6. FLOMAX [Concomitant]
  7. AVANDIA [Suspect]
     Indication: DIABETES MELLITUS
     Dosage: 4MG PER DAY
     Route: 048
     Dates: start: 20010418, end: 20070601
  8. LISINOPRIL [Concomitant]
  9. TOPROL-XL [Concomitant]
  10. LISINOPRIL AND HYDROCHLOROTHIAZIDE [Concomitant]

REACTIONS (5)
  - VENTRICULAR FIBRILLATION [None]
  - CORONARY ARTERY DISEASE [None]
  - MYOCARDIAL INFARCTION [None]
  - CARDIAC ARREST [None]
  - HYPOXIC-ISCHAEMIC ENCEPHALOPATHY [None]
